FAERS Safety Report 15965258 (Version 2)
Quarter: 2019Q2

REPORT INFORMATION
  Report Type: Spontaneous
  Country: US (occurrence: US)
  Receive Date: 20190215
  Receipt Date: 20190412
  Transmission Date: 20190711
  Serious: Yes (Hospitalization, Other)
  Sender: FDA-Public Use
  Company Number: US-ASTRAZENECA-2019SE24747

PATIENT
  Age: 707 Month
  Sex: Female
  Weight: 129.3 kg

DRUGS (4)
  1. SYMBICORT [Suspect]
     Active Substance: BUDESONIDE\FORMOTEROL FUMARATE DIHYDRATE
     Indication: CHRONIC OBSTRUCTIVE PULMONARY DISEASE
     Dosage: 160/4.5 UG, TWO PUFFS TWICE DAILY
     Route: 055
  2. ALBUTEROL. [Concomitant]
     Active Substance: ALBUTEROL
     Dosage: TWO TO FOUR TIMES PER DAY
     Route: 055
  3. SPIRIVA [Concomitant]
     Active Substance: TIOTROPIUM BROMIDE MONOHYDRATE
  4. OXYGEN. [Concomitant]
     Active Substance: OXYGEN

REACTIONS (13)
  - Arthralgia [Unknown]
  - Device issue [Unknown]
  - Malaise [Unknown]
  - Gastric disorder [Unknown]
  - Dyspnoea [Unknown]
  - Incorrect dose administered [Unknown]
  - Lower respiratory tract infection [Unknown]
  - Epistaxis [Unknown]
  - Feeling abnormal [Unknown]
  - Intentional product misuse [Unknown]
  - Off label use [Unknown]
  - Pulmonary hypertension [Unknown]
  - Panic attack [Unknown]

NARRATIVE: CASE EVENT DATE: 201805
